FAERS Safety Report 7082753-X (Version None)
Quarter: 2010Q4

REPORT INFORMATION
  Report Type: 
  Country: None (occurrence: None)
  Receive Date: 20101104
  Receipt Date: 20101026
  Transmission Date: 20110411
  Serious: Yes (Hospitalization, Other)
  Sender: FDA-Public Use
  Company Number: FR-BRISTOL-MYERS SQUIBB COMPANY-15353600

PATIENT
  Age: 45 Year
  Sex: Female

DRUGS (9)
  1. VIDEX [Suspect]
     Indication: HIV INFECTION
     Route: 048
     Dates: start: 20100625
  2. REYATAZ [Suspect]
     Indication: HIV INFECTION
     Dosage: REINTRODUCED ON 19AUG10
     Route: 048
     Dates: start: 20100819
  3. EFAVIRENZ [Suspect]
  4. EPIVIR [Suspect]
     Indication: HIV INFECTION
     Route: 048
     Dates: start: 20100625
  5. ISENTRESS [Suspect]
     Indication: HIV INFECTION
     Dosage: REINTRODUCED 17AUG10,ISENTRESS 400MG FILM-COATED TABLET.
     Route: 048
     Dates: start: 20100625
  6. VIREAD [Suspect]
     Dates: start: 20100811
  7. PREZISTA [Suspect]
  8. NORVIR [Suspect]
     Indication: HIV INFECTION
     Dates: start: 20100528
  9. PIASCLEDINE [Concomitant]

REACTIONS (6)
  - ACUTE GENERALISED EXANTHEMATOUS PUSTULOSIS [None]
  - ASTHENIA [None]
  - CASTLEMAN'S DISEASE [None]
  - DRUG RESISTANCE [None]
  - PANCYTOPENIA [None]
  - WEIGHT DECREASED [None]
